FAERS Safety Report 11813230 (Version 1)
Quarter: 2015Q4

REPORT INFORMATION
  Report Type: Spontaneous
  Country: US (occurrence: None)
  Receive Date: 20151207
  Receipt Date: 20151207
  Transmission Date: 20160305
  Serious: No
  Sender: FDA-Public Use
  Company Number: None

PATIENT
  Sex: Female
  Weight: 38.8 kg

DRUGS (23)
  1. CHOLESTYRAMINE. [Concomitant]
     Active Substance: CHOLESTYRAMINE
  2. PROTONIX [Concomitant]
     Active Substance: PANTOPRAZOLE SODIUM
  3. ZOFRAN [Concomitant]
     Active Substance: ONDANSETRON HYDROCHLORIDE
  4. MEDICAL MARIJUANA [Concomitant]
     Active Substance: CANNABIS SATIVA SUBSP. INDICA TOP
  5. LASIX [Concomitant]
     Active Substance: FUROSEMIDE
  6. TRIAMCINOLONE [Concomitant]
     Active Substance: TRIAMCINOLONE
  7. OMEPRAZOLE. [Concomitant]
     Active Substance: OMEPRAZOLE
  8. POTASSIUM CHLORIDE. [Concomitant]
     Active Substance: POTASSIUM CHLORIDE
  9. ATIVAN [Concomitant]
     Active Substance: LORAZEPAM
  10. RIFAXIMIN [Concomitant]
     Active Substance: RIFAXIMIN
  11. LACTULOSE. [Concomitant]
     Active Substance: LACTULOSE
  12. HYDROXYZINE [Concomitant]
     Active Substance: HYDROXYZINE\HYDROXYZINE HYDROCHLORIDE
  13. NEOMYCIN [Concomitant]
     Active Substance: NEOMYCIN
  14. NICOTINE. [Concomitant]
     Active Substance: NICOTINE
  15. VALIUM [Concomitant]
     Active Substance: DIAZEPAM
  16. SINEQUAN [Concomitant]
     Active Substance: DOXEPIN HYDROCHLORIDE
  17. CREON [Concomitant]
     Active Substance: PANCRELIPASE AMYLASE\PANCRELIPASE LIPASE\PANCRELIPASE PROTEASE
  18. CITALOPRAM [Concomitant]
     Active Substance: CITALOPRAM HYDROBROMIDE
  19. ONDANSETRON [Concomitant]
     Active Substance: ONDANSETRON
  20. LEVOTHYROXINE. [Concomitant]
     Active Substance: LEVOTHYROXINE
  21. HARVONI [Suspect]
     Active Substance: LEDIPASVIR\SOFOSBUVIR
     Indication: HEPATITIS C
     Dosage: 400/90 MG
     Route: 048
     Dates: start: 20150204, end: 20150722
  22. ALDACTONE [Concomitant]
     Active Substance: SPIRONOLACTONE
  23. ATARAX [Concomitant]
     Active Substance: HYDROXYZINE\HYDROXYZINE HYDROCHLORIDE

REACTIONS (5)
  - Vomiting [None]
  - Abdominal pain [None]
  - Diarrhoea [None]
  - Clostridium difficile infection [None]
  - Diverticulitis [None]

NARRATIVE: CASE EVENT DATE: 20150623
